FAERS Safety Report 6163326-X (Version None)
Quarter: 2009Q2

REPORT INFORMATION
  Report Type: 
  Country: None (occurrence: None)
  Receive Date: 20090420
  Receipt Date: 20090420
  Transmission Date: 20091009
  Serious: No
  Sender: FDA-Public Use
  Company Number: None

PATIENT
  Age: 85 Year
  Sex: Male
  Weight: 57 kg

DRUGS (2)
  1. CEFTRIAXONE [Suspect]
     Dosage: 1 GM ONCE IV
     Route: 042
     Dates: start: 20081112, end: 20081112
  2. AZITHROMYCIN [Suspect]
     Dosage: 500 MG ONCE IV
     Route: 042
     Dates: start: 20081112, end: 20081112

REACTIONS (1)
  - CLOSTRIDIUM DIFFICILE TOXIN TEST POSITIVE [None]
